FAERS Safety Report 5091220-4 (Version None)
Quarter: 2006Q3

REPORT INFORMATION
  Report Type: 
  Country: None (occurrence: None)
  Receive Date: 20060727
  Receipt Date: 20060503
  Transmission Date: 20061208
  Serious: Yes (Other)
  Sender: FDA-Public Use
  Company Number: 2006060477

PATIENT
  Age: 55 Year
  Sex: Male
  Weight: 99.7913 kg

DRUGS (7)
  1. LYRICA [Suspect]
     Indication: FIBROMYALGIA
     Dosage: (75 MG),ORAL
     Route: 048
     Dates: start: 20060503
  2. LEVSIN (HYOSCYAMINE SULFATE) [Concomitant]
  3. SYNTHROID [Concomitant]
  4. DARVOCET [Concomitant]
  5. ULTRAM [Concomitant]
  6. KLONOPIN (CLONAZAPEM) [Concomitant]
  7. TIMOPTIC [Concomitant]

REACTIONS (2)
  - VISION BLURRED [None]
  - VISUAL DISTURBANCE [None]
